FAERS Safety Report 7429469-5 (Version None)
Quarter: 2011Q2

REPORT INFORMATION
  Report Type: 
  Country: None (occurrence: None)
  Receive Date: 20110421
  Receipt Date: 20110411
  Transmission Date: 20111010
  Serious: Yes (Hospitalization)
  Sender: FDA-Public Use
  Company Number: US-JNJFOC-20110400286

PATIENT
  Sex: Female
  Weight: 147.3 kg

DRUGS (18)
  1. METHOTREXATE [Suspect]
     Indication: RHEUMATOID ARTHRITIS
     Route: 048
  2. GOLIMUMAB [Suspect]
     Indication: RHEUMATOID ARTHRITIS
     Route: 058
  3. HYDROCHLOROTHIAZIDE [Concomitant]
     Route: 048
  4. GOLIMUMAB [Suspect]
     Route: 058
  5. RESTORIL [Concomitant]
     Route: 048
  6. PRILOSEC [Concomitant]
     Route: 048
  7. CALCIUM AND VIT D [Concomitant]
     Route: 048
  8. PREDNISONE [Concomitant]
  9. PLACEBO [Suspect]
     Indication: RHEUMATOID ARTHRITIS
     Route: 058
  10. DARVOCET-N 100 [Concomitant]
     Route: 048
  11. NORINYL-1 [Concomitant]
     Route: 048
  12. LASIX [Concomitant]
     Route: 048
  13. MELOXICAM [Concomitant]
  14. NEURONTIN [Concomitant]
     Route: 048
  15. HYDROCODONE BITARTRATE AND ACETAMINOPHEN [Concomitant]
  16. OXYCODONE HCL AND ACETAMINOPHEN [Concomitant]
  17. METHOTREXATE [Suspect]
     Route: 048
  18. LISINOPRIL [Concomitant]
     Route: 048

REACTIONS (1)
  - ABSCESS LIMB [None]
